FAERS Safety Report 22285996 (Version 7)
Quarter: 2023Q4

REPORT INFORMATION
  Report Type: Report from Study
  Country: BE (occurrence: BE)
  Receive Date: 20230505
  Receipt Date: 20231116
  Transmission Date: 20240110
  Serious: Yes (Hospitalization, Other)
  Sender: FDA-Public Use
  Company Number: BE-ABBVIE-4743392

PATIENT
  Age: 65 Year
  Sex: Male
  Weight: 69 kg

DRUGS (13)
  1. VENETOCLAX [Suspect]
     Active Substance: VENETOCLAX
     Indication: Mantle cell lymphoma
     Route: 065
     Dates: start: 20220914
  2. IBRUTINIB [Suspect]
     Active Substance: IBRUTINIB
     Indication: Mantle cell lymphoma
     Route: 065
     Dates: start: 20220817
  3. RITUXIMAB [Concomitant]
     Active Substance: RITUXIMAB
     Indication: Mantle cell lymphoma
     Dates: start: 20220816
  4. FENTANYL [Concomitant]
     Active Substance: FENTANYL\FENTANYL CITRATE
     Indication: Pain
  5. OMEPRAZOLE [Concomitant]
     Active Substance: OMEPRAZOLE
     Indication: Product used for unknown indication
  6. ACYCLOVIR [Concomitant]
     Active Substance: ACYCLOVIR
     Indication: Antiviral prophylaxis
  7. CIALIS [Concomitant]
     Active Substance: TADALAFIL
     Indication: Erectile dysfunction
  8. ELIQUIS [Concomitant]
     Active Substance: APIXABAN
     Indication: Anticoagulant therapy
  9. BISOPROLOL [Concomitant]
     Active Substance: BISOPROLOL\BISOPROLOL FUMARATE
     Indication: Cardiac failure
  10. AMLODIPINE [Concomitant]
     Active Substance: AMLODIPINE BESYLATE
     Indication: Product used for unknown indication
  11. FRAMYCETIN SULFATE\NAPHAZOLINE NITRATE\PREDNISOLONE ACETATE [Concomitant]
     Active Substance: FRAMYCETIN SULFATE\NAPHAZOLINE NITRATE\PREDNISOLONE ACETATE
     Indication: Product used for unknown indication
  12. HEXETIDINE [Concomitant]
     Active Substance: HEXETIDINE
     Indication: Product used for unknown indication
  13. LASIX [Concomitant]
     Active Substance: FUROSEMIDE
     Indication: Product used for unknown indication

REACTIONS (3)
  - Pneumocystis jirovecii pneumonia [Recovered/Resolved]
  - Neutropenia [Recovered/Resolved]
  - Pneumonia haemophilus [Recovered/Resolved]

NARRATIVE: CASE EVENT DATE: 20230418
